FAERS Safety Report 4874360-1 (Version None)
Quarter: 2006Q1

REPORT INFORMATION
  Report Type: 
  Country: None (occurrence: None)
  Receive Date: 20060106
  Receipt Date: 20051128
  Transmission Date: 20060701
  Serious: Yes (Death, Other)
  Sender: FDA-Public Use
  Company Number: JP-BRISTOL-MYERS SQUIBB COMPANY-13194097

PATIENT
  Age: 23 Year
  Sex: Male

DRUGS (16)
  1. BLEOMYCIN [Suspect]
     Indication: LYMPHOMA
     Route: 042
     Dates: start: 20050922, end: 20050922
  2. ENDOXAN [Suspect]
     Indication: MALIGNANT MELANOMA
     Route: 042
     Dates: start: 20050915, end: 20050915
  3. ONCOVIN [Suspect]
     Indication: MALIGNANT MELANOMA
     Route: 042
     Dates: start: 20050922, end: 20050922
  4. ADRIACIN [Suspect]
     Indication: MALIGNANT MELANOMA
     Route: 042
     Dates: start: 20050915, end: 20050915
  5. DIFLUCAN [Suspect]
     Indication: MALIGNANT MELANOMA
     Route: 042
     Dates: start: 20050912, end: 20050914
  6. FOY [Suspect]
     Indication: MALIGNANT MELANOMA
     Route: 042
     Dates: start: 20050914, end: 20050924
  7. SOLU-CORTEF [Concomitant]
     Indication: PROPHYLAXIS
     Route: 042
     Dates: start: 20050922, end: 20050922
  8. KYTRIL [Concomitant]
     Route: 042
     Dates: start: 20050922, end: 20050922
  9. SOLU-MEDROL [Concomitant]
     Dates: start: 20050729, end: 20050808
  10. PREDONINE [Concomitant]
     Route: 048
     Dates: start: 20050823, end: 20050922
  11. TAKEPRON [Concomitant]
     Route: 048
     Dates: end: 20050922
  12. MAALOX FAST BLOCKER [Concomitant]
     Route: 048
     Dates: end: 20050922
  13. COTRIM [Concomitant]
     Route: 048
     Dates: start: 20050730, end: 20050922
  14. MAGNESIUM OXIDE [Concomitant]
     Route: 048
     Dates: start: 20050810, end: 20050810
  15. FUNGIZONE [Concomitant]
     Dates: start: 20050907, end: 20050913
  16. NAPROXEN [Concomitant]
     Dates: start: 20050909, end: 20050913

REACTIONS (13)
  - BLOOD PRESSURE DECREASED [None]
  - CARDIAC ARREST [None]
  - CONVULSION [None]
  - DISSEMINATED INTRAVASCULAR COAGULATION [None]
  - EPISTAXIS [None]
  - HAEMATEMESIS [None]
  - HAEMOGLOBIN DECREASED [None]
  - LOSS OF CONSCIOUSNESS [None]
  - MALIGNANT NEOPLASM PROGRESSION [None]
  - MELAENA [None]
  - PLATELET COUNT DECREASED [None]
  - PYREXIA [None]
  - RED BLOOD CELL COUNT DECREASED [None]
